FAERS Safety Report 10877585 (Version 1)
Quarter: 2015Q1

REPORT INFORMATION
  Report Type: Spontaneous
  Country: US (occurrence: None)
  Receive Date: 20150224
  Receipt Date: 20150224
  Transmission Date: 20150721
  Serious: Yes (Other)
  Sender: FDA-Public Use
  Company Number: None

PATIENT
  Age: 83 Year
  Sex: Female
  Weight: 68.04 kg

DRUGS (4)
  1. VIT. D, FOLIC ACID, VIT. B - COMPLEX [Concomitant]
     Active Substance: FOLIC ACID\VITAMINS
  2. XARELTO [Suspect]
     Active Substance: RIVAROXABAN
     Indication: ATRIAL FIBRILLATION
     Dosage: 15 MG 1 PILL ONCE DAILY WITH DINNER MEAL BY MOUTH
     Route: 048
     Dates: start: 20130213, end: 20150212
  3. CALCIUM [Concomitant]
     Active Substance: CALCIUM
  4. NADOLOL -- CPAP SLEEP MACHINE [Concomitant]

REACTIONS (2)
  - Haematoma [None]
  - Pain in extremity [None]

NARRATIVE: CASE EVENT DATE: 20141224
